FAERS Safety Report 14785091 (Version 2)
Quarter: 2018Q2

REPORT INFORMATION
  Report Type: Report from Study
  Country: CA (occurrence: CA)
  Receive Date: 20180420
  Receipt Date: 20180601
  Transmission Date: 20180711
  Serious: Yes (Death)
  Sender: FDA-Public Use
  Company Number: CA-HLSUS-2018-CA-000641

PATIENT
  Age: 68 Year
  Sex: Male
  Weight: 102 kg

DRUGS (14)
  1. TYLENOL [Concomitant]
     Active Substance: ACETAMINOPHEN
     Dosage: 1000 MG BID AS NEEDED
     Route: 048
  2. FLOMAX [Concomitant]
     Active Substance: TAMSULOSIN HYDROCHLORIDE
     Dosage: 0.4 MG ONCE A DAY
     Route: 048
  3. ATROPINE. [Concomitant]
     Active Substance: ATROPINE
     Dosage: 1 % 1-2 AS NEEDED
  4. LAX-A-DAY [Concomitant]
     Route: 048
  5. BICARBONATE SODIUM [Concomitant]
     Active Substance: SODIUM BICARBONATE
     Dosage: 500 MG BID
  6. INDERAL [Concomitant]
     Active Substance: PROPRANOLOL HYDROCHLORIDE
     Dosage: 40 MG BID
     Route: 048
  7. THIAMINE B1 [Concomitant]
     Dosage: 100 MG ONCE A DAY
     Route: 048
  8. LIPITOR [Concomitant]
     Active Substance: ATORVASTATIN CALCIUM
     Dosage: 20 MG ONCE A DAY
  9. EPIVAL [Concomitant]
     Active Substance: DIVALPROEX SODIUM
  10. RISPERDAL [Concomitant]
     Active Substance: RISPERIDONE
     Dosage: 5 MG AT BEDTIME
     Route: 048
  11. COUMADIN [Concomitant]
     Active Substance: WARFARIN SODIUM
  12. CLOZARIL [Suspect]
     Active Substance: CLOZAPINE
     Indication: SCHIZOAFFECTIVE DISORDER
     Route: 048
     Dates: start: 20140321
  13. SYNTHROID [Concomitant]
     Active Substance: LEVOTHYROXINE SODIUM
     Dosage: 225 MG ONCE A DAY
     Route: 048
  14. ATIVAN [Concomitant]
     Active Substance: LORAZEPAM
     Dosage: 1-2 MG
     Route: 048

REACTIONS (4)
  - Intestinal obstruction [Unknown]
  - Arrhythmia [Fatal]
  - Haemoglobin decreased [Unknown]
  - Syncope [Unknown]

NARRATIVE: CASE EVENT DATE: 2016
